FAERS Safety Report 8336704-8 (Version None)
Quarter: 2012Q2

REPORT INFORMATION
  Report Type: 
  Country: None (occurrence: None)
  Receive Date: 20120504
  Receipt Date: 20120426
  Transmission Date: 20120825
  Serious: Yes (Other)
  Sender: FDA-Public Use
  Company Number: US-BAYER-2012-015740

PATIENT
  Age: 26 Year
  Sex: Female
  Weight: 58.685 kg

DRUGS (1)
  1. MIRENA [Suspect]
     Dosage: UNK
     Route: 015
     Dates: start: 20080101

REACTIONS (2)
  - SMEAR CERVIX ABNORMAL [None]
  - CERVICAL DYSPLASIA [None]
